FAERS Safety Report 23559854 (Version 2)
Quarter: 2024Q1

REPORT INFORMATION
  Report Type: Report from Study
  Country: FR (occurrence: FR)
  Receive Date: 20240223
  Receipt Date: 20240315
  Transmission Date: 20240410
  Serious: Yes (Hospitalization)
  Sender: FDA-Public Use
  Company Number: FR-PFIZER INC-PV202400023416

PATIENT
  Age: 27 Year
  Sex: Male
  Weight: 83 kg

DRUGS (1)
  1. ABROCITINIB [Suspect]
     Active Substance: ABROCITINIB
     Indication: Dermatitis atopic
     Dosage: 200 MG, 1X/DAY
     Route: 048
     Dates: start: 20231220

REACTIONS (1)
  - Superinfection [Recovered/Resolved]

NARRATIVE: CASE EVENT DATE: 20231226
